FAERS Safety Report 5652458-8 (Version None)
Quarter: 2008Q1

REPORT INFORMATION
  Report Type: 
  Country: None (occurrence: None)
  Receive Date: 20080305
  Receipt Date: 20080305
  Transmission Date: 20080703
  Serious: Yes (Other)
  Sender: FDA-Public Use
  Company Number: None

PATIENT
  Age: 45 Year
  Sex: Male
  Weight: 111.5 kg

DRUGS (1)
  1. IODIXANOL 320MGI/ML AMERSHAM HEALTH [Suspect]
     Indication: CATHETERISATION CARDIAC
     Dosage: 150ML ONCE IV
     Route: 042
     Dates: start: 20070604, end: 20070604

REACTIONS (2)
  - CONTRAST MEDIA REACTION [None]
  - RASH PRURITIC [None]
